FAERS Safety Report 21407666 (Version 1)
Quarter: 2022Q4

REPORT INFORMATION
  Report Type: Spontaneous
  Country: US (occurrence: None)
  Receive Date: 20221004
  Receipt Date: 20221004
  Transmission Date: 20230113
  Serious: No
  Sender: FDA-Public Use
  Company Number: None

PATIENT
  Age: 23 Year
  Sex: Female
  Weight: 82.8 kg

DRUGS (8)
  1. DEXTROAMPHET SACCHARAT, AMPHET ASPARTATE, DEXTROAMPHET SULFATE AND AMP [Suspect]
     Active Substance: AMPHETAMINE ASPARTATE\AMPHETAMINE SULFATE\DEXTROAMPHETAMINE SACCHARATE\DEXTROAMPHETAMINE SULFATE
     Indication: Attention deficit hyperactivity disorder
     Dosage: OTHER QUANTITY : 1 TABLET(S);?FREQUENCY : TWICE A DAY;?
     Route: 048
     Dates: start: 20220924
  2. LAMOTRIGINE [Concomitant]
     Active Substance: LAMOTRIGINE
  3. THIAMINE [Concomitant]
     Active Substance: THIAMINE
  4. ACAMPROSATE [Concomitant]
     Active Substance: ACAMPROSATE
  5. GABAPENTIN [Concomitant]
     Active Substance: GABAPENTIN
  6. BUSPIRONE [Concomitant]
     Active Substance: BUSPIRONE HYDROCHLORIDE
  7. MEDROXYPROGESTERONE [Concomitant]
     Active Substance: MEDROXYPROGESTERONE
  8. Nature^s Bounty Women^s multivitamin gummies [Concomitant]

REACTIONS (8)
  - Feeling abnormal [None]
  - Product colour issue [None]
  - Myalgia [None]
  - Feeling abnormal [None]
  - Speech disorder [None]
  - Initial insomnia [None]
  - Sleep disorder [None]
  - Product substitution issue [None]

NARRATIVE: CASE EVENT DATE: 20220924
